FAERS Safety Report 6184952-8 (Version None)
Quarter: 2009Q2

REPORT INFORMATION
  Report Type: 
  Country: None (occurrence: None)
  Receive Date: 20090511
  Receipt Date: 20090209
  Transmission Date: 20091009
  Serious: No
  Sender: FDA-Public Use
  Company Number: A0702431A

PATIENT
  Age: 73 Year
  Sex: Male
  Weight: 72.7 kg

DRUGS (10)
  1. COREG CR [Suspect]
     Dosage: 20MG PER DAY
     Route: 048
     Dates: start: 20070717
  2. CARVEDILOL [Suspect]
     Indication: HYPERTENSION
     Dosage: 6.25MG TWICE PER DAY
     Route: 048
     Dates: start: 20080501
  3. ENALAPRIL MALEATE [Concomitant]
     Indication: HYPERTENSION
     Dosage: 5MG TWICE PER DAY
     Route: 048
     Dates: start: 20070712
  4. AMIODARONE [Concomitant]
     Dosage: 100MG PER DAY
  5. CLONAZEPAM [Concomitant]
     Dosage: 5MG AT NIGHT
  6. LIPITOR [Concomitant]
     Dosage: 10MG PER DAY
  7. ZETIA [Concomitant]
     Dosage: 10MG PER DAY
     Route: 048
  8. ASPIRIN [Concomitant]
     Dosage: 162MG PER DAY
  9. RESTASIS [Concomitant]
     Dosage: 1DROP TWICE PER DAY
  10. LISINOPRIL [Concomitant]

REACTIONS (3)
  - DIZZINESS [None]
  - HEART RATE DECREASED [None]
  - HYPOTENSION [None]
